FAERS Safety Report 20475412 (Version 1)
Quarter: 2022Q1

REPORT INFORMATION
  Report Type: Spontaneous
  Country: US (occurrence: None)
  Receive Date: 20220214
  Receipt Date: 20220214
  Transmission Date: 20220424
  Serious: Yes (Hospitalization)
  Sender: FDA-Public Use
  Company Number: None

PATIENT
  Age: 77 Year
  Sex: Male

DRUGS (5)
  1. SILDENAFIL CITRATE [Suspect]
     Active Substance: SILDENAFIL CITRATE
     Indication: Erectile dysfunction
     Dosage: OTHER QUANTITY : 6 TABLET(S);?OTHER FREQUENCY : ONE HR B4 SEX;?
     Route: 048
     Dates: start: 20210723, end: 20220212
  2. VITAMINS [Concomitant]
     Active Substance: VITAMINS
  3. VITAMIN D [Concomitant]
     Active Substance: VITAMIN D NOS
  4. BIOTIN [Concomitant]
     Active Substance: BIOTIN
  5. lions Maine [Concomitant]

REACTIONS (4)
  - Anger [None]
  - Thinking abnormal [None]
  - Suicide attempt [None]
  - Aggression [None]

NARRATIVE: CASE EVENT DATE: 20220212
